FAERS Safety Report 25250976 (Version 1)
Quarter: 2025Q2

REPORT INFORMATION
  Report Type: Spontaneous
  Country: US (occurrence: US)
  Receive Date: 20250429
  Receipt Date: 20250429
  Transmission Date: 20250716
  Serious: No
  Sender: UNIQUE PHARMACEUTICALS
  Company Number: US-UniquePharma-US-2025UPLSPO00043

PATIENT

DRUGS (8)
  1. TINIDAZOLE [Suspect]
     Active Substance: TINIDAZOLE
     Indication: Lyme disease
     Route: 065
  2. TINIDAZOLE [Suspect]
     Active Substance: TINIDAZOLE
     Indication: Babesiosis
  3. AZITHROMYCIN [Suspect]
     Active Substance: AZITHROMYCIN
     Indication: Lyme disease
     Route: 065
  4. AZITHROMYCIN [Suspect]
     Active Substance: AZITHROMYCIN
     Indication: Babesiosis
  5. CEFOTAXIME SODIUM [Suspect]
     Active Substance: CEFOTAXIME SODIUM
     Indication: Lyme disease
     Route: 065
  6. CEFOTAXIME SODIUM [Suspect]
     Active Substance: CEFOTAXIME SODIUM
     Indication: Babesiosis
  7. MINOCYCLINE [Suspect]
     Active Substance: MINOCYCLINE HYDROCHLORIDE
     Indication: Lyme disease
     Route: 065
  8. MINOCYCLINE [Suspect]
     Active Substance: MINOCYCLINE HYDROCHLORIDE
     Indication: Babesiosis

REACTIONS (4)
  - Lip swelling [Unknown]
  - Eye swelling [Unknown]
  - Pruritus [Unknown]
  - Urticaria [Unknown]
